FAERS Safety Report 9774137 (Version 2)
Quarter: 2013Q4

REPORT INFORMATION
  Report Type: Spontaneous
  Country: RS (occurrence: RS)
  Receive Date: 20131220
  Receipt Date: 20131220
  Transmission Date: 20140711
  Serious: Yes (Other)
  Sender: FDA-Public Use
  Company Number: RS-MERCK-1312SRB000895

PATIENT
  Age: 55 Year
  Sex: Male

DRUGS (1)
  1. AERIUS [Suspect]
     Indication: SKIN REACTION
     Dosage: TOTAL DIALY DOSE 5 MG, 1X1
     Route: 048
     Dates: end: 2013

REACTIONS (11)
  - Asphyxia [Recovered/Resolved]
  - Erythema [Recovered/Resolved]
  - Erythema [Recovered/Resolved]
  - Face oedema [Recovered/Resolved]
  - Face oedema [Recovered/Resolved]
  - Condition aggravated [Recovered/Resolved]
  - Condition aggravated [Recovered/Resolved]
  - Swelling face [Recovered/Resolved]
  - Swelling face [Recovered/Resolved]
  - Pruritus [Recovered/Resolved]
  - Pruritus [Recovered/Resolved]
